FAERS Safety Report 5498727-6 (Version None)
Quarter: 2007Q4

REPORT INFORMATION
  Report Type: 
  Country: None (occurrence: None)
  Receive Date: 20071026
  Receipt Date: 20070820
  Transmission Date: 20080405
  Serious: No
  Sender: FDA-Public Use
  Company Number: A0663321A

PATIENT
  Age: 81 Year
  Sex: Female

DRUGS (8)
  1. ADVAIR DISKUS 100/50 [Suspect]
     Indication: CHRONIC OBSTRUCTIVE PULMONARY DISEASE
     Dosage: 1PUFF TWICE PER DAY
     Route: 055
  2. ALBUTEROL [Concomitant]
  3. SYNTHROID [Concomitant]
  4. ECOTRIN [Concomitant]
  5. FOLIC ACID [Concomitant]
  6. FISH OIL [Concomitant]
  7. FOSAMAX [Concomitant]
  8. RESTASIS [Concomitant]

REACTIONS (4)
  - ASTHENOPIA [None]
  - BRONCHITIS [None]
  - EYE PAIN [None]
  - SOMNOLENCE [None]
